FAERS Safety Report 9350557 (Version 1)
Quarter: 2013Q2

REPORT INFORMATION
  Report Type: Report from Study
  Country: US (occurrence: US)
  Receive Date: 20130617
  Receipt Date: 20130617
  Transmission Date: 20140414
  Serious: Yes (Hospitalization)
  Sender: FDA-Public Use
  Company Number: US-ROCHE-1237343

PATIENT
  Sex: Female

DRUGS (1)
  1. XELODA [Suspect]
     Indication: PRODUCT USED FOR UNKNOWN INDICATION
     Dosage: 500 MG, 3 TABLETS TWICE DAILY /150 MG TWICE DAILY, 14 DAYS ON AND 7 DAYS OFF
     Route: 065

REACTIONS (1)
  - Medical induction of coma [Not Recovered/Not Resolved]
